FAERS Safety Report 15109327 (Version 1)
Quarter: 2018Q3

REPORT INFORMATION
  Report Type: Spontaneous
  Country: GB (occurrence: GB)
  Receive Date: 20180705
  Receipt Date: 20180705
  Transmission Date: 20181010
  Serious: Yes (Other)
  Sender: FDA-Public Use
  Company Number: GB-DRREDDYS-GER/UKI/18/0101124

PATIENT
  Age: 82 Year
  Sex: Male
  Weight: 69.85 kg

DRUGS (8)
  1. CLOPIDOGREL [Concomitant]
     Active Substance: CLOPIDOGREL BISULFATE
  2. LAXIDO [Concomitant]
     Active Substance: POLYETHYLENE GLYCOL 3350\POTASSIUM CHLORIDE\SODIUM BICARBONATE\SODIUM CHLORIDE
     Indication: PRODUCT USED FOR UNKNOWN INDICATION
  3. AMLODIPINE [Concomitant]
     Active Substance: AMLODIPINE BESYLATE
     Indication: PRODUCT USED FOR UNKNOWN INDICATION
  4. DONEPEZIL. [Concomitant]
     Active Substance: DONEPEZIL
     Indication: PRODUCT USED FOR UNKNOWN INDICATION
     Dosage: ALONGSIDE MEMANTINE FOR 2 WEEKS
  5. MEMANTIN [Suspect]
     Active Substance: MEMANTINE
     Dosage: 5MG FOR THE FIRST 2 WEEKS (ALONG WITH 5MG OF DONEPEZIL) THEN 10MG PER DAY
     Route: 048
     Dates: start: 20180312, end: 20180325
  6. ATORVASTATIN [Concomitant]
     Active Substance: ATORVASTATIN
     Indication: PRODUCT USED FOR UNKNOWN INDICATION
  7. PANTOPRAZOLE [Concomitant]
     Active Substance: PANTOPRAZOLE
     Indication: PRODUCT USED FOR UNKNOWN INDICATION
  8. MEMANTIN [Suspect]
     Active Substance: MEMANTINE
     Indication: ANXIETY
     Dosage: 5MG FOR THE FIRST 2 WEEKS (ALONG WITH 5MG OF DONEPEZIL) THEN 10MG PER DAY
     Route: 048
     Dates: start: 20180326, end: 20180407

REACTIONS (11)
  - Muscular weakness [Recovered/Resolved]
  - Dyskinesia [Recovered/Resolved]
  - Swelling face [Recovered/Resolved]
  - Asthenia [Recovered/Resolved]
  - Contusion [Recovered/Resolved]
  - Yellow skin [Recovered/Resolved]
  - Tension [Recovered/Resolved]
  - Agitation [Unknown]
  - Fatigue [Recovered/Resolved]
  - Tardive dyskinesia [Recovered/Resolved]
  - Skin exfoliation [Recovered/Resolved]

NARRATIVE: CASE EVENT DATE: 20180315
